FAERS Safety Report 22041068 (Version 2)
Quarter: 2023Q1

REPORT INFORMATION
  Report Type: Report from Study
  Country: US (occurrence: US)
  Receive Date: 20230227
  Receipt Date: 20230316
  Transmission Date: 20230417
  Serious: Yes (Congenital Anomaly, Other)
  Sender: FDA-Public Use
  Company Number: US-UCBSA-2023009616

PATIENT
  Age: 0 Year
  Sex: Female
  Weight: 3.8 kg

DRUGS (14)
  1. CERTOLIZUMAB PEGOL [Suspect]
     Active Substance: CERTOLIZUMAB PEGOL
     Indication: Rheumatoid arthritis
     Dosage: UNK
     Route: 064
     Dates: start: 20190415, end: 20191212
  2. CERTOLIZUMAB PEGOL [Suspect]
     Active Substance: CERTOLIZUMAB PEGOL
     Indication: Psoriatic arthropathy
  3. ACETONE [Concomitant]
     Active Substance: ACETONE
     Indication: Foetal exposure timing unspecified
     Dosage: UNK
     Route: 064
     Dates: start: 20190312, end: 20191129
  4. ASPIRIN [Concomitant]
     Active Substance: ASPIRIN
     Indication: Foetal exposure timing unspecified
     Dosage: UNK
     Route: 064
     Dates: start: 20190312, end: 20190731
  5. BETAMETHASONE DIPROPIONATE [Concomitant]
     Active Substance: BETAMETHASONE DIPROPIONATE
     Indication: Foetal exposure timing unspecified
     Dosage: UNK
     Route: 064
     Dates: start: 20190312, end: 20190830
  6. CAFFEINE [Concomitant]
     Active Substance: CAFFEINE
     Indication: Foetal exposure timing unspecified
     Dosage: UNK
     Route: 064
     Dates: start: 20190312, end: 20190830
  7. COSENTYX [Concomitant]
     Active Substance: SECUKINUMAB
     Indication: Foetal exposure timing unspecified
     Dosage: UNK
     Route: 064
     Dates: start: 20190312, end: 20190401
  8. FIBER LAXATIVE [Concomitant]
     Indication: Foetal exposure timing unspecified
     Dosage: UNK
     Route: 064
     Dates: start: 20191001, end: 20191212
  9. INFLUENZA VIRUS VACCINE [Concomitant]
     Active Substance: INFLUENZA VIRUS VACCINE
     Indication: Foetal exposure timing unspecified
     Dosage: UNK
     Route: 064
     Dates: start: 20191023, end: 20191023
  10. IRON [Concomitant]
     Active Substance: IRON
     Indication: Foetal exposure timing unspecified
     Dosage: UNK
     Route: 064
     Dates: start: 20191001, end: 20191212
  11. METFORMIN HYDROCHLORIDE [Concomitant]
     Active Substance: METFORMIN HYDROCHLORIDE
     Indication: Foetal exposure timing unspecified
     Dosage: UNK
     Route: 064
     Dates: start: 20190201, end: 20190815
  12. PROGESTERONE [Concomitant]
     Active Substance: PROGESTERONE
     Indication: Foetal exposure timing unspecified
     Dosage: UNK
     Route: 064
     Dates: start: 20190409, end: 20190521
  13. MENTHOL [Concomitant]
     Active Substance: MENTHOL
     Indication: Foetal exposure timing unspecified
     Dosage: UNK
     Route: 064
     Dates: start: 20190601, end: 20190608
  14. VITAMIN D NOS [Concomitant]
     Active Substance: VITAMIN D NOS
     Indication: Foetal exposure timing unspecified
     Dosage: UNK
     Route: 064
     Dates: start: 20190312, end: 20190902

REACTIONS (6)
  - Ventricular septal defect [Unknown]
  - Patent ductus arteriosus [Unknown]
  - Dilatation ventricular [Unknown]
  - Cardiac murmur [Recovered/Resolved]
  - Atrial septal defect [Unknown]
  - Maternal exposure during pregnancy [Unknown]

NARRATIVE: CASE EVENT DATE: 20190415
